FAERS Safety Report 9274851 (Version 4)
Quarter: 2013Q4

REPORT INFORMATION
  Report Type: Spontaneous
  Country: JP (occurrence: None)
  Receive Date: 20130429
  Receipt Date: 20131115
  Transmission Date: 20140711
  Serious: Yes (Other)
  Sender: FDA-Public Use
  Company Number: ADR-2013-00727

PATIENT
  Age: 27 Year
  Sex: Female

DRUGS (1)
  1. GABALON [Suspect]
     Dates: start: 20130403

REACTIONS (8)
  - Implant site reaction [None]
  - Implant site oedema [None]
  - Urticaria [None]
  - Allergy to metals [None]
  - Bacterial test [None]
  - Drug hypersensitivity [None]
  - Foreign body reaction [None]
  - Swelling [None]
